FAERS Safety Report 9272003 (Version 1)
Quarter: 2013Q2

REPORT INFORMATION
  Report Type: Spontaneous
  Country: KR (occurrence: KR)
  Receive Date: 20130506
  Receipt Date: 20130506
  Transmission Date: 20140414
  Serious: Yes (Hospitalization, Other)
  Sender: FDA-Public Use
  Company Number: KR-009507513-1305KOR000507

PATIENT
  Age: 21 Year
  Sex: Female
  Weight: 80 kg

DRUGS (3)
  1. ESMERON [Suspect]
     Indication: MAINTENANCE OF ANAESTHESIA
     Dosage: 10 MG, TWICE
     Route: 042
  2. ESMERON [Suspect]
     Dosage: 20 MG, UNK
     Route: 042
  3. VOLUVEN [Suspect]
     Dosage: 500 ML, UNK
     Route: 042

REACTIONS (2)
  - Diaphragmatic paralysis [Recovering/Resolving]
  - Drug administration error [Unknown]
